FAERS Safety Report 19145453 (Version 2)
Quarter: 2021Q2

REPORT INFORMATION
  Report Type: Spontaneous
  Country: CH (occurrence: CH)
  Receive Date: 20210416
  Receipt Date: 20210423
  Transmission Date: 20210717
  Serious: No
  Sender: FDA-Public Use
  Company Number: CH-ASTRAZENECA-2021A295622

PATIENT
  Age: 73 Year
  Sex: Male

DRUGS (9)
  1. LYNPARZA [Suspect]
     Active Substance: OLAPARIB
     Indication: CHOLANGIOCARCINOMA
     Dosage: 200.0MG UNKNOWN
     Route: 048
     Dates: start: 20210331
  2. LYNPARZA [Suspect]
     Active Substance: OLAPARIB
     Indication: BRCA1 GENE MUTATION
     Dosage: 200.0MG UNKNOWN
     Route: 048
     Dates: start: 20210331
  3. LYNPARZA [Suspect]
     Active Substance: OLAPARIB
     Indication: BRCA1 GENE MUTATION
     Dosage: 300.0MG UNKNOWN
     Route: 048
     Dates: start: 20210225, end: 20210330
  4. LYNPARZA [Suspect]
     Active Substance: OLAPARIB
     Indication: BRCA1 GENE MUTATION
     Dosage: 150.0MG UNKNOWN
     Route: 048
     Dates: start: 202102
  5. LYNPARZA [Suspect]
     Active Substance: OLAPARIB
     Indication: CHOLANGIOCARCINOMA
     Dosage: 300.0MG UNKNOWN
     Route: 048
     Dates: start: 20210225, end: 20210330
  6. LAXOBERON [Concomitant]
     Active Substance: SODIUM PICOSULFATE
     Indication: CONSTIPATION
  7. LYNPARZA [Suspect]
     Active Substance: OLAPARIB
     Indication: CHOLANGIOCARCINOMA
     Dosage: 150.0MG UNKNOWN
     Route: 048
     Dates: start: 202102
  8. DUROGESIC [Concomitant]
     Active Substance: FENTANYL
     Indication: PAIN
  9. TAMSULOSIN [Concomitant]
     Active Substance: TAMSULOSIN
     Indication: BENIGN PROSTATIC HYPERPLASIA

REACTIONS (1)
  - Renal impairment [Not Recovered/Not Resolved]

NARRATIVE: CASE EVENT DATE: 20210215
